FAERS Safety Report 19598460 (Version 4)
Quarter: 2021Q3

REPORT INFORMATION
  Report Type: Spontaneous
  Country: GB (occurrence: GB)
  Receive Date: 20210723
  Receipt Date: 20210913
  Transmission Date: 20211014
  Serious: Yes (Death, Hospitalization, Other)
  Sender: FDA-Public Use
  Company Number: NVSC2020GB339972

PATIENT
  Age: 55 Year
  Sex: Female

DRUGS (57)
  1. TRASTUZUMAB. [Suspect]
     Active Substance: TRASTUZUMAB
     Indication: BREAST CANCER
     Dosage: 525 MG, TIW
     Route: 041
     Dates: start: 20170524, end: 20170524
  2. PACLITAX NAB [Suspect]
     Active Substance: PACLITAXEL
     Indication: BREAST CANCER
     Dosage: 375 MG, TIW
     Route: 042
     Dates: start: 20170614, end: 20170614
  3. PACLITAX NAB [Suspect]
     Active Substance: PACLITAXEL
     Dosage: 300 MG, TIW
     Route: 042
     Dates: start: 20170816, end: 20170906
  4. LOPERAMIDE [Concomitant]
     Active Substance: LOPERAMIDE
     Indication: PRODUCT USED FOR UNKNOWN INDICATION
     Dosage: 2 MG, AS NECESSARY
     Route: 048
     Dates: start: 20170613, end: 20201113
  5. AZTREONAM. [Concomitant]
     Active Substance: AZTREONAM
     Indication: PRODUCT CONTAMINATION MICROBIAL
     Dosage: UNK
     Route: 042
     Dates: start: 20201028, end: 20201104
  6. METRONIDAZOLE. [Concomitant]
     Active Substance: METRONIDAZOLE
     Dosage: 400 MG, QMO
     Route: 048
     Dates: start: 20201116, end: 202011
  7. AMITRIPTYLINE [Concomitant]
     Active Substance: AMITRIPTYLINE
     Indication: DEPRESSED MOOD
     Dosage: UNK
     Route: 065
  8. ZOLEDRONIC ACID [Concomitant]
     Active Substance: ZOLEDRONIC ACID
     Indication: PRODUCT USED FOR UNKNOWN INDICATION
     Dosage: 4 MG
     Route: 042
     Dates: start: 20170525, end: 20201022
  9. SANDO K [Concomitant]
     Indication: PRODUCT USED FOR UNKNOWN INDICATION
     Dosage: 1 DF
     Route: 048
     Dates: start: 20170525, end: 20170529
  10. CAPECITABINE. [Suspect]
     Active Substance: CAPECITABINE
     Indication: BREAST CANCER
     Dosage: 1300 MG
     Route: 048
     Dates: start: 20201020
  11. NERATINIB [Suspect]
     Active Substance: NERATINIB
     Indication: BREAST CANCER
     Dosage: 240 MG, QD
     Route: 048
     Dates: start: 20200919, end: 20201104
  12. CIPROFLOXACINE [Concomitant]
     Active Substance: CIPROFLOXACIN
     Indication: ABDOMINAL PAIN UPPER
     Dosage: UNK
     Route: 065
     Dates: start: 20200707, end: 20200707
  13. CEFUROXIME. [Concomitant]
     Active Substance: CEFUROXIME
     Indication: PRODUCT CONTAMINATION MICROBIAL
     Dosage: 250 MG, BID 0.5 DAY
     Route: 048
     Dates: start: 20200925, end: 20201019
  14. CEFUROXIME. [Concomitant]
     Active Substance: CEFUROXIME
     Dosage: 250 MG, BID  0.5 DAY
     Route: 048
     Dates: start: 20201028
  15. CHLORHEXIDINE GLUCONATE. [Concomitant]
     Active Substance: CHLORHEXIDINE GLUCONATE
     Dosage: 10 ML, 0.25 DAY
     Route: 061
     Dates: start: 20170525, end: 2017
  16. AMITRIPTYLINE [Concomitant]
     Active Substance: AMITRIPTYLINE
     Dosage: 5 MG, QD
     Route: 048
     Dates: start: 20190827, end: 20190919
  17. CLOBETASOL PROPIONATE. [Concomitant]
     Active Substance: CLOBETASOL PROPIONATE
     Indication: PRODUCT USED FOR UNKNOWN INDICATION
     Dosage: 0.05 % 0.5 DAY
     Route: 061
     Dates: start: 20170210, end: 201708
  18. TRASTUZUMAB EMTANSINE [Suspect]
     Active Substance: ADO-TRASTUZUMAB EMTANSINE
     Dosage: 200 MG, TIW
     Route: 042
     Dates: start: 20190627, end: 20190718
  19. LANSOPRAZOLE. [Concomitant]
     Active Substance: LANSOPRAZOLE
     Indication: GASTRITIS
     Dosage: 30 MG, QD
     Route: 048
     Dates: start: 20190730, end: 202010
  20. CETIRIZINE [Concomitant]
     Active Substance: CETIRIZINE HYDROCHLORIDE
     Indication: URTICARIA PAPULAR
     Dosage: UNK, QD
     Route: 048
     Dates: start: 20190313, end: 2019
  21. VANCOMYCIN [Concomitant]
     Active Substance: VANCOMYCIN
     Indication: CLOSTRIDIUM DIFFICILE INFECTION
     Dosage: 125 MG
     Route: 048
     Dates: start: 20201030, end: 20201104
  22. IKERVIS [Concomitant]
     Active Substance: CYCLOSPORINE
     Indication: BLEPHARITIS
     Dosage: UNK
     Route: 047
     Dates: start: 201708, end: 2018
  23. AMITRIPTYLINE [Concomitant]
     Active Substance: AMITRIPTYLINE
     Dosage: 1660 MG, QD
     Route: 048
     Dates: start: 20190827, end: 20190919
  24. TEICOPLANIN [Concomitant]
     Active Substance: TEICOPLANIN
     Indication: PRODUCT CONTAMINATION MICROBIAL
     Dosage: UNK
     Route: 042
     Dates: start: 20200502, end: 20200515
  25. TEICOPLANIN [Concomitant]
     Active Substance: TEICOPLANIN
     Dosage: UNK
     Route: 042
     Dates: start: 20201028, end: 20201104
  26. DOCETAXEL. [Suspect]
     Active Substance: DOCETAXEL
     Indication: BREAST CANCER
     Dosage: 130 MG, TIW
     Route: 042
     Dates: start: 20170525, end: 20170525
  27. TRASTUZUMAB EMTANSINE [Suspect]
     Active Substance: ADO-TRASTUZUMAB EMTANSINE
     Dosage: 160 MG, TIW
     Route: 042
     Dates: start: 20190829, end: 20200326
  28. PACLITAX NAB [Suspect]
     Active Substance: PACLITAXEL
     Dosage: 375 MG, TIW
     Route: 042
     Dates: start: 20170705, end: 20170726
  29. TRANEXAMIC ACID. [Concomitant]
     Active Substance: TRANEXAMIC ACID
     Dosage: 1 G
     Route: 048
     Dates: start: 20201112, end: 20201113
  30. METRONIDAZOLE. [Concomitant]
     Active Substance: METRONIDAZOLE
     Indication: DUODENAL ULCER
     Dosage: UNK
     Route: 042
     Dates: start: 20200630, end: 20200709
  31. METRONIDAZOLE. [Concomitant]
     Active Substance: METRONIDAZOLE
     Indication: ABDOMINAL PAIN UPPER
     Dosage: UNK
     Route: 065
     Dates: start: 20200909, end: 20200914
  32. TINZAPARIN [Concomitant]
     Active Substance: TINZAPARIN
     Indication: PRODUCT USED FOR UNKNOWN INDICATION
     Dosage: UNK
     Route: 058
     Dates: start: 20170713, end: 20190723
  33. TRASTUZUMAB. [Suspect]
     Active Substance: TRASTUZUMAB
     Dosage: 400 MG, TIW
     Route: 041
     Dates: start: 20170614, end: 20180425
  34. ERIBULIN MESYLATE [Suspect]
     Active Substance: ERIBULIN MESYLATE
     Indication: BREAST CANCER
     Dosage: 1.85 MG
     Route: 042
     Dates: start: 20200611, end: 20200820
  35. PERTUZUMAB. [Suspect]
     Active Substance: PERTUZUMAB
     Dosage: 420 MG, TIW
     Route: 042
     Dates: start: 20170614, end: 20190327
  36. CIPROFLOXACINE [Concomitant]
     Active Substance: CIPROFLOXACIN
     Indication: CHOLECYSTITIS ACUTE
     Dosage: UNK
     Route: 065
     Dates: start: 20200909, end: 20200916
  37. TRANEXAMIC ACID. [Concomitant]
     Active Substance: TRANEXAMIC ACID
     Indication: DUODENAL ULCER
     Dosage: UNK
     Route: 065
     Dates: start: 20190722, end: 201907
  38. TRANEXAMIC ACID. [Concomitant]
     Active Substance: TRANEXAMIC ACID
     Indication: COAGULOPATHY
     Dosage: 1 G, TID
     Route: 048
     Dates: start: 20201111, end: 20201112
  39. METRONIDAZOLE. [Concomitant]
     Active Substance: METRONIDAZOLE
     Indication: CHOLECYSTITIS ACUTE
     Dosage: 2 MG, QD
     Route: 042
     Dates: start: 20200925, end: 20200927
  40. AMITRIPTYLINE [Concomitant]
     Active Substance: AMITRIPTYLINE
     Dosage: 120 MG
     Route: 048
  41. TINZAPARIN [Concomitant]
     Active Substance: TINZAPARIN
     Dosage: 4500 IU, QD
     Route: 058
     Dates: start: 20190916, end: 20191008
  42. TRASTUZUMAB. [Suspect]
     Active Substance: TRASTUZUMAB
     Dosage: 378 MG, TIW
     Route: 041
     Dates: start: 20180516, end: 20190327
  43. FUSIDIC ACID [Concomitant]
     Active Substance: FUSIDIC ACID
     Indication: RHINITIS
     Dosage: UNK
     Route: 065
  44. FUSIDIC ACID [Concomitant]
     Active Substance: FUSIDIC ACID
     Indication: RHINITIS
     Dosage: UNK
     Route: 065
     Dates: start: 201905, end: 201905
  45. CEFTRIAXONE. [Concomitant]
     Active Substance: CEFTRIAXONE
     Indication: PRODUCT CONTAMINATION MICROBIAL
     Dosage: 2 G, QD
     Route: 042
  46. CHLORPHENAMINE [Concomitant]
     Active Substance: CHLORPHENIRAMINE MALEATE
     Indication: PRODUCT USED FOR UNKNOWN INDICATION
     Dosage: 4 MG
     Route: 048
     Dates: start: 20170526, end: 20170530
  47. DERMOVATE [Concomitant]
     Active Substance: CLOBETASOL
     Indication: PRODUCT USED FOR UNKNOWN INDICATION
     Dosage: 0.5 %
     Route: 061
     Dates: start: 20170210, end: 201708
  48. TRASTUZUMAB EMTANSINE [Suspect]
     Active Substance: ADO-TRASTUZUMAB EMTANSINE
     Indication: BREAST CANCER
     Dosage: 240 MG, TIW
     Route: 042
     Dates: start: 20190427, end: 20190606
  49. DOMPERIDONE [Concomitant]
     Active Substance: DOMPERIDONE
     Indication: PRODUCT USED FOR UNKNOWN INDICATION
     Dosage: 10 MG 0.33 DAY
     Route: 048
     Dates: start: 20170523, end: 20170526
  50. PARACETAMOL [Concomitant]
     Active Substance: ACETAMINOPHEN
     Indication: PRODUCT USED FOR UNKNOWN INDICATION
     Dosage: 1 IU
     Route: 048
     Dates: start: 20170525
  51. PERTUZUMAB. [Suspect]
     Active Substance: PERTUZUMAB
     Indication: BREAST CANCER
     Dosage: 840 MG, TIW
     Route: 042
     Dates: start: 20170524, end: 20170524
  52. CEFTRIAXONE. [Concomitant]
     Active Substance: CEFTRIAXONE
     Dosage: 250 MG, BID 0.5 DAY
     Route: 048
     Dates: start: 20200928, end: 20201012
  53. CALCICHEW D3 FORTE [Concomitant]
     Active Substance: CALCIUM\CHOLECALCIFEROL
     Indication: PRODUCT USED FOR UNKNOWN INDICATION
     Dosage: 1 DF
     Route: 048
     Dates: start: 20170525
  54. VANCOMYCIN [Concomitant]
     Active Substance: VANCOMYCIN
     Dosage: 500 MG
     Route: 048
     Dates: start: 20201104, end: 20201113
  55. SALIVA SUBSTITUTE [Concomitant]
     Active Substance: CARBOXYMETHYLCELLULOSE SODIUM\DEVICE\SORBINICATE
     Indication: PRODUCT USED FOR UNKNOWN INDICATION
     Dosage: UNK (1 SPRAY)
     Route: 060
     Dates: start: 20170526, end: 2017
  56. CHLORHEXIDINE GLUCONATE. [Concomitant]
     Active Substance: CHLORHEXIDINE GLUCONATE
     Indication: PRODUCT USED FOR UNKNOWN INDICATION
     Dosage: UNK
     Route: 065
  57. TEICOPLANIN [Concomitant]
     Active Substance: TEICOPLANIN
     Indication: BILIARY SEPSIS
     Dosage: UNK
     Route: 042
     Dates: start: 20200925, end: 20200925

REACTIONS (6)
  - Disease progression [Fatal]
  - Off label use [Unknown]
  - Breast cancer [Fatal]
  - Pyrexia [Recovered/Resolved]
  - Abdominal pain [Not Recovered/Not Resolved]
  - Pyrexia [Not Recovered/Not Resolved]

NARRATIVE: CASE EVENT DATE: 20200724
